FAERS Safety Report 10090798 (Version 1)
Quarter: 2014Q2

REPORT INFORMATION
  Report Type: Report from Study
  Country: US (occurrence: US)
  Receive Date: 20140421
  Receipt Date: 20140421
  Transmission Date: 20141212
  Serious: Yes (Death)
  Sender: FDA-Public Use
  Company Number: US-SA-2014SA050466

PATIENT
  Sex: 0

DRUGS (2)
  1. FLUDARABINE PHOSPHATE [Suspect]
     Indication: MYELOID LEUKAEMIA
     Dosage: ADMINISTERED OVER 30 MINUTES INTENDED TO BE GIVEN FOR 5 CONSECUTIVE DAYS.
     Route: 042
  2. ANTINEOPLASTIC AGENTS [Suspect]
     Indication: MYELOID LEUKAEMIA
     Dosage: ADMINISTERED OVER 4 HOURS; INTENDED TO BE GIVEN FOR 5 CONSECUTIVE DAYS.
     Route: 042

REACTIONS (1)
  - Cardiogenic shock [Fatal]
